FAERS Safety Report 22181847 (Version 1)
Quarter: 2023Q2

REPORT INFORMATION
  Report Type: Spontaneous
  Country: CA (occurrence: CA)
  Receive Date: 20230406
  Receipt Date: 20230406
  Transmission Date: 20230722
  Serious: Yes (Other)
  Sender: FDA-Public Use
  Company Number: CA-PFIZER INC-202300144563

PATIENT
  Age: 63 Year
  Sex: Male

DRUGS (2)
  1. MIDAZOLAM [Suspect]
     Active Substance: MIDAZOLAM
     Indication: Bronchoscopy
     Dosage: 5 MG/ML
     Route: 065
  2. FENTANYL [Suspect]
     Active Substance: FENTANYL
     Indication: Bronchoscopy
     Dosage: 75 UG
     Route: 065

REACTIONS (2)
  - Unresponsive to stimuli [Unknown]
  - Hypotension [Unknown]
